FAERS Safety Report 7607563-3 (Version None)
Quarter: 2011Q3

REPORT INFORMATION
  Report Type: 
  Country: None (occurrence: None)
  Receive Date: 20110713
  Receipt Date: 20110702
  Transmission Date: 20111222
  Serious: Yes (Other)
  Sender: FDA-Public Use
  Company Number: PHHY2011NL59768

PATIENT

DRUGS (3)
  1. CYCLOSPORINE [Suspect]
  2. ETANERCEPT [Suspect]
     Dosage: UNK
  3. METHOTREXATE [Concomitant]

REACTIONS (6)
  - ABDOMINAL PAIN [None]
  - WEIGHT DECREASED [None]
  - INFLAMMATORY BOWEL DISEASE [None]
  - HAEMATOCHEZIA [None]
  - DIARRHOEA [None]
  - COLITIS ULCERATIVE [None]
